FAERS Safety Report 6543246-9 (Version None)
Quarter: 2010Q1

REPORT INFORMATION
  Report Type: 
  Country: None (occurrence: None)
  Receive Date: 20100120
  Receipt Date: 20100105
  Transmission Date: 20100710
  Serious: Yes (Other)
  Sender: FDA-Public Use
  Company Number: DE-CELGENEUS-062-50794-09120273

PATIENT
  Age: 73 Year
  Sex: Male

DRUGS (3)
  1. VIDAZA [Suspect]
     Route: 058
     Dates: start: 20091126, end: 20091202
  2. ANTIHYPERTENSIVES [Concomitant]
     Indication: DRUG USE FOR UNKNOWN INDICATION
     Route: 065
  3. KEVATRIL [Concomitant]
     Indication: DRUG USE FOR UNKNOWN INDICATION
     Route: 050
     Dates: start: 20091126, end: 20091202

REACTIONS (4)
  - BLOOD PRESSURE DECREASED [None]
  - ECZEMA [None]
  - HYPERSENSITIVITY [None]
  - PYREXIA [None]
